FAERS Safety Report 10246315 (Version 1)
Quarter: 2014Q2

REPORT INFORMATION
  Report Type: Other
  Country: US (occurrence: US)
  Receive Date: 20140619
  Receipt Date: 20140619
  Transmission Date: 20141212
  Serious: No
  Sender: FDA-Public Use
  Company Number: US-LUPIN PHARMACEUTICALS INC.-2014-01000

PATIENT
  Sex: 0

DRUGS (1)
  1. SERTRALINE TABLETS USP 25 MG [Suspect]
     Indication: PRODUCT USED FOR UNKNOWN INDICATION
     Route: 065

REACTIONS (3)
  - Anxiety [Recovering/Resolving]
  - Depressed mood [Recovering/Resolving]
  - Crying [Recovering/Resolving]
